FAERS Safety Report 7543713-5 (Version None)
Quarter: 2011Q2

REPORT INFORMATION
  Report Type: 
  Country: None (occurrence: None)
  Receive Date: 20110613
  Receipt Date: 20030827
  Transmission Date: 20111010
  Serious: Yes (Other)
  Sender: FDA-Public Use
  Company Number: PHHO2003CA10871

PATIENT
  Sex: Male

DRUGS (1)
  1. CLOZAPINE [Suspect]
     Indication: SCHIZOPHRENIA
     Dates: start: 19951120

REACTIONS (4)
  - PRODUCTIVE COUGH [None]
  - PNEUMONIA [None]
  - DYSPNOEA [None]
  - VIRAL INFECTION [None]
